FAERS Safety Report 25812642 (Version 1)
Quarter: 2025Q3

REPORT INFORMATION
  Report Type: Spontaneous
  Country: US (occurrence: US)
  Receive Date: 20250917
  Receipt Date: 20250917
  Transmission Date: 20251021
  Serious: Yes (Hospitalization, Other)
  Sender: BRISTOL-MYERS SQUIBB COMPANY
  Company Number: US-BRISTOL-MYERS SQUIBB COMPANY-2025-127375

PATIENT
  Age: 53 Year
  Sex: Male

DRUGS (2)
  1. NELVUTAMIG [Suspect]
     Active Substance: NELVUTAMIG
     Indication: Metastatic malignant melanoma
  2. NIVOLUMAB [Suspect]
     Active Substance: NIVOLUMAB
     Indication: Metastatic malignant melanoma

REACTIONS (2)
  - Immune-mediated thyroiditis [Recovering/Resolving]
  - Immune-mediated hypophysitis [Unknown]

NARRATIVE: CASE EVENT DATE: 20250521
